FAERS Safety Report 7803124-1 (Version None)
Quarter: 2011Q4

REPORT INFORMATION
  Report Type: 
  Country: None (occurrence: None)
  Receive Date: 20111007
  Receipt Date: 20110927
  Transmission Date: 20120403
  Serious: Yes (Other)
  Sender: FDA-Public Use
  Company Number: PHHY2010MX76648

PATIENT
  Age: 60 Year
  Sex: Male

DRUGS (2)
  1. RASILEZ [Suspect]
     Indication: HYPERTENSION
     Dosage: 300 MG (1 TABLET DAILY)
     Route: 048
     Dates: start: 20100701
  2. RASILEZ [Suspect]
     Indication: CARDIAC DISORDER

REACTIONS (3)
  - CARDIOMEGALY [None]
  - CARDIAC DISORDER [None]
  - FLUID RETENTION [None]
